FAERS Safety Report 9137849 (Version 2)
Quarter: 2013Q2

REPORT INFORMATION
  Report Type: Report from Study
  Country: BR (occurrence: BR)
  Receive Date: 20130304
  Receipt Date: 20130513
  Transmission Date: 20140414
  Serious: Yes (Death, Other)
  Sender: FDA-Public Use
  Company Number: PHHY2013BR020760

PATIENT
  Age: 67 Year
  Sex: Female

DRUGS (1)
  1. ONBREZ [Suspect]

REACTIONS (2)
  - Death [Fatal]
  - Emphysema [Unknown]
